FAERS Safety Report 5839504-3 (Version None)
Quarter: 2008Q3

REPORT INFORMATION
  Report Type: 
  Country: None (occurrence: None)
  Receive Date: 20080807
  Receipt Date: 20080728
  Transmission Date: 20090109
  Serious: Yes (Death)
  Sender: FDA-Public Use
  Company Number: A-JP2008-21389

PATIENT
  Age: 76 Year
  Sex: Female

DRUGS (12)
  1. TRACLEER [Suspect]
     Indication: PULMONARY HYPERTENSION
     Dosage: 62.5 MG, BID, ORAL
     Route: 048
     Dates: start: 20070501, end: 20070518
  2. LOXOPROFEN SODIUM (LOXOPROFEN SODIUM) [Concomitant]
  3. REBAMIPIDE (REBAMIPIDE) [Concomitant]
  4. ASPIRIN [Concomitant]
  5. CLARITHROMYCIN [Concomitant]
  6. PREDNISONE [Concomitant]
  7. FUROSEMIDE (FUROSEMIDE) [Concomitant]
  8. FAMOTIDINE [Concomitant]
  9. LORAZEPAM [Concomitant]
  10. SALBUTAMOL SULFATE (SALBUTAMOL SULFATE) [Concomitant]
  11. TULOBUTEROL (TULOBUTEROL) [Concomitant]
  12. OXYGEN (OXYGEN) [Concomitant]

REACTIONS (4)
  - CARDIAC FAILURE [None]
  - CONDITION AGGRAVATED [None]
  - PULMONARY HYPERTENSION [None]
  - RESPIRATORY FAILURE [None]
